FAERS Safety Report 8062772-7 (Version None)
Quarter: 2012Q1

REPORT INFORMATION
  Report Type: 
  Country: None (occurrence: None)
  Receive Date: 20120123
  Receipt Date: 20120115
  Transmission Date: 20120608
  Serious: Yes (Other)
  Sender: FDA-Public Use
  Company Number: US-BAYER-2012-005867

PATIENT

DRUGS (1)
  1. ALEVE (CAPLET) [Suspect]
     Route: 048

REACTIONS (7)
  - FEELING ABNORMAL [None]
  - DYSPHAGIA [None]
  - PRURITUS GENITAL [None]
  - DIARRHOEA [None]
  - PRURITUS GENERALISED [None]
  - MUSCLE RIGIDITY [None]
  - ERYTHEMA [None]
